FAERS Safety Report 7042426-6 (Version None)
Quarter: 2010Q4

REPORT INFORMATION
  Report Type: 
  Country: None (occurrence: None)
  Receive Date: 20101013
  Receipt Date: 20100609
  Transmission Date: 20110411
  Serious: No
  Sender: FDA-Public Use
  Company Number: US-ASTRAZENECA-2010SE21750

PATIENT
  Sex: Female

DRUGS (2)
  1. SYMBICORT [Suspect]
     Dosage: 160/4.5 1 PUFF 4-6 HOURS
     Route: 055
  2. SYMBICORT [Suspect]
     Dosage: 160/4.5 1 PUFF 1-2 TIMES A DAY
     Route: 055

REACTIONS (5)
  - ASTHMA [None]
  - COUGH [None]
  - DRUG DOSE OMISSION [None]
  - DYSPNOEA [None]
  - WHEEZING [None]
